FAERS Safety Report 17487195 (Version 1)
Quarter: 2020Q1

REPORT INFORMATION
  Report Type: Spontaneous
  Country: US (occurrence: US)
  Receive Date: 20200303
  Receipt Date: 20200303
  Transmission Date: 20200409
  Serious: Yes (Death, Hospitalization)
  Sender: FDA-Public Use
  Company Number: US-TEVA-2020-US-1193589

PATIENT
  Age: 33 Year
  Sex: Male

DRUGS (1)
  1. LIDOCAINE. [Suspect]
     Active Substance: LIDOCAINE
     Indication: GASTROOESOPHAGEAL REFLUX DISEASE
     Route: 055

REACTIONS (12)
  - Pupil fixed [Not Recovered/Not Resolved]
  - Local anaesthetic systemic toxicity [Fatal]
  - Gastric dilatation [Not Recovered/Not Resolved]
  - Electrocardiogram QRS complex prolonged [Recovering/Resolving]
  - Cardiac arrest [Recovered/Resolved]
  - Brain death [Fatal]
  - Unresponsive to stimuli [Not Recovered/Not Resolved]
  - Hypotension [Recovering/Resolving]
  - Brain herniation [Unknown]
  - Accidental poisoning [Fatal]
  - Brain injury [Unknown]
  - Brain oedema [Unknown]
